FAERS Safety Report 24154749 (Version 2)
Quarter: 2024Q3

REPORT INFORMATION
  Report Type: Report from Study
  Country: US (occurrence: US)
  Receive Date: 20240731
  Receipt Date: 20240806
  Transmission Date: 20241017
  Serious: No
  Sender: JOHNSON AND JOHNSON
  Company Number: US-JNJFOC-20240775813

PATIENT
  Age: 62 Year
  Sex: Female

DRUGS (9)
  1. SPRAVATO [Suspect]
     Active Substance: ESKETAMINE
     Indication: Major depression
     Dosage: 56 MG, TOTAL OF 1 DOSE?START DATE ALSO REPORTED AS 18-MAR-2021 (84 MG)
     Dates: start: 20210323, end: 20210323
  2. SPRAVATO [Suspect]
     Active Substance: ESKETAMINE
     Indication: Depression
     Dosage: 84 MG, TOTAL OF 107 DOSES
     Dates: start: 20210325, end: 20240718
  3. SPRAVATO [Suspect]
     Active Substance: ESKETAMINE
     Indication: Insomnia
     Dosage: 84 MG, TOTAL OF 1 DOSE
     Dates: start: 20240725, end: 20240725
  4. SPRAVATO [Suspect]
     Active Substance: ESKETAMINE
     Indication: Anxiety disorder
  5. SPRAVATO [Suspect]
     Active Substance: ESKETAMINE
     Indication: Essential hypertension
  6. SPRAVATO [Suspect]
     Active Substance: ESKETAMINE
     Indication: Affective disorder
  7. CYMBALTA [Concomitant]
     Active Substance: DULOXETINE HYDROCHLORIDE
     Indication: Major depression
     Dates: start: 20210318
  8. LAMICTAL [Concomitant]
     Active Substance: LAMOTRIGINE
     Indication: Depression
     Dates: start: 20210318
  9. KLONOPIN [Concomitant]
     Active Substance: CLONAZEPAM
     Indication: Anxiety
     Dates: start: 20210318

REACTIONS (2)
  - Hypertension [Recovered/Resolved]
  - Dissociation [Recovered/Resolved]

NARRATIVE: CASE EVENT DATE: 20240725
